FAERS Safety Report 6775488-1 (Version None)
Quarter: 2010Q2

REPORT INFORMATION
  Report Type: 
  Country: None (occurrence: None)
  Receive Date: 20100617
  Receipt Date: 20100609
  Transmission Date: 20101027
  Serious: Yes (Other)
  Sender: FDA-Public Use
  Company Number: PHHO2010DE08651

PATIENT
  Sex: Male
  Weight: 77.8 kg

DRUGS (2)
  1. CERTICAN [Suspect]
     Indication: RENAL TRANSPLANT
     Dosage: UNK
     Route: 048
     Dates: start: 20090822, end: 20100421
  2. SANDIMMUNE [Suspect]
     Indication: RENAL TRANSPLANT
     Dosage: UNK
     Route: 048
     Dates: start: 20090822, end: 20100421

REACTIONS (4)
  - BONE MARROW OEDEMA [None]
  - BONE PAIN [None]
  - OEDEMA PERIPHERAL [None]
  - TENOSYNOVITIS [None]
